FAERS Safety Report 4617762-0 (Version None)
Quarter: 2005Q1

REPORT INFORMATION
  Report Type: 
  Country: None (occurrence: None)
  Receive Date: 20050324
  Receipt Date: 20021010
  Transmission Date: 20050727
  Serious: Yes (Hospitalization)
  Sender: FDA-Public Use
  Company Number: 002#4#2002-00245

PATIENT
  Age: 39 Year
  Sex: Male

DRUGS (4)
  1. CONTAC SINUS [Suspect]
     Indication: SINUS DISORDER
     Route: 048
     Dates: start: 19960101, end: 19960801
  2. ALKA SELTZER PLUS COLD MEDICINE [Suspect]
     Indication: SINUS DISORDER
     Route: 048
     Dates: start: 19960101, end: 19960801
  3. CONTAC [Concomitant]
  4. TYLENOL (CAPLET) [Concomitant]
     Indication: HEADACHE

REACTIONS (30)
  - ACTIVITIES OF DAILY LIVING IMPAIRED [None]
  - AMNESIA [None]
  - ASTHENIA [None]
  - BRAIN OEDEMA [None]
  - CEREBRAL HAEMORRHAGE [None]
  - CLONUS [None]
  - CONSTIPATION [None]
  - DYSARTHRIA [None]
  - DYSPHAGIA [None]
  - DYSURIA [None]
  - ENCEPHALOMALACIA [None]
  - EXTENSOR PLANTAR RESPONSE [None]
  - FACIAL PALSY [None]
  - FACIAL PARESIS [None]
  - FATIGUE [None]
  - GAIT HEMIPLEGIC [None]
  - HEMIPARESIS [None]
  - HEMIPLEGIA [None]
  - HYPERREFLEXIA [None]
  - HYPERTONIA [None]
  - HYPOTONIA [None]
  - INSOMNIA [None]
  - MIGRAINE [None]
  - MOBILITY DECREASED [None]
  - MUSCLE SPASTICITY [None]
  - NAUSEA [None]
  - NYSTAGMUS [None]
  - REFLEXES ABNORMAL [None]
  - SENSATION OF FOREIGN BODY [None]
  - SENSORY LOSS [None]
